FAERS Safety Report 14630010 (Version 6)
Quarter: 2020Q1

REPORT INFORMATION
  Report Type: Spontaneous
  Country: GB (occurrence: GB)
  Receive Date: 20180313
  Receipt Date: 20200115
  Transmission Date: 20200409
  Serious: Yes (Hospitalization)
  Sender: FDA-Public Use
  Company Number: GB-MYLANLABS-2018M1016444

PATIENT
  Age: 62 Year
  Sex: Male

DRUGS (2)
  1. CLOZARIL [Suspect]
     Active Substance: CLOZAPINE
     Dosage: UNK
     Route: 048
     Dates: start: 20180309
  2. CLOZARIL [Suspect]
     Active Substance: CLOZAPINE
     Indication: SCHIZOPHRENIA
     Dosage: UNK
     Route: 048
     Dates: start: 20090126, end: 20180226

REACTIONS (4)
  - Blood electrolytes abnormal [Recovered/Resolved]
  - Differential white blood cell count abnormal [Unknown]
  - Eosinophilia [Recovering/Resolving]
  - Alcohol use disorder [Unknown]

NARRATIVE: CASE EVENT DATE: 20190403
